FAERS Safety Report 6544986-8 (Version None)
Quarter: 2010Q1

REPORT INFORMATION
  Report Type: 
  Country: None (occurrence: None)
  Receive Date: 20100121
  Receipt Date: 20091201
  Transmission Date: 20100710
  Serious: Yes (Other)
  Sender: FDA-Public Use
  Company Number: A0832065A

PATIENT
  Age: 35 Year
  Sex: Female
  Weight: 88.6 kg

DRUGS (11)
  1. AVANDIA [Suspect]
     Dosage: 8MG IN THE MORNING
     Route: 048
  2. GLUCOPHAGE [Concomitant]
  3. INSULIN [Concomitant]
  4. NEXIUM [Concomitant]
  5. ZELNORM [Concomitant]
  6. PROTONIX [Concomitant]
  7. ASPIRIN [Concomitant]
     Dates: end: 20060201
  8. NSAID [Concomitant]
     Dates: end: 20060201
  9. DARVOCET [Concomitant]
  10. LYRICA [Concomitant]
  11. FLEXERIL [Concomitant]

REACTIONS (5)
  - BLOOD CHOLESTEROL INCREASED [None]
  - EYE DISORDER [None]
  - HYPERTENSION [None]
  - MACULAR OEDEMA [None]
  - OEDEMA PERIPHERAL [None]
